FAERS Safety Report 6695400-3 (Version None)
Quarter: 2010Q2

REPORT INFORMATION
  Report Type: 
  Country: None (occurrence: None)
  Receive Date: 20100422
  Receipt Date: 20100422
  Transmission Date: 20101027
  Serious: No
  Sender: FDA-Public Use
  Company Number: None

PATIENT
  Age: 74 Year
  Sex: Female
  Weight: 70.3075 kg

DRUGS (1)
  1. AZITHROMYCIN 200 MG [Suspect]
     Indication: RESPIRATORY TRACT INFECTION
     Dosage: 2 1/2 TSP FIRST DAY 1 1/4 TSPS 4 DAYS
     Dates: start: 20100307, end: 20100311

REACTIONS (1)
  - DEAFNESS [None]
